FAERS Safety Report 20028807 (Version 2)
Quarter: 2021Q4

REPORT INFORMATION
  Report Type: Spontaneous
  Country: US (occurrence: US)
  Receive Date: 20211103
  Receipt Date: 20211228
  Transmission Date: 20220304
  Serious: Yes (Other)
  Sender: FDA-Public Use
  Company Number: US-NOVARTISPH-NVSC2021US244653

PATIENT

DRUGS (4)
  1. LETROZOLE [Suspect]
     Active Substance: LETROZOLE
     Indication: Product used for unknown indication
     Dosage: UNK
     Route: 065
     Dates: start: 20211021
  2. IBRANCE [Suspect]
     Active Substance: PALBOCICLIB
     Indication: Breast cancer
     Dosage: 125 MG
     Route: 065
  3. IBRANCE [Suspect]
     Active Substance: PALBOCICLIB
     Dosage: 100 MG, QD
     Route: 065
     Dates: start: 20210921
  4. IBRANCE [Suspect]
     Active Substance: PALBOCICLIB
     Dosage: 75 MG, QD (STRENGTH 75 MG)
     Route: 048
     Dates: start: 20211021

REACTIONS (5)
  - Rheumatoid arthritis [Unknown]
  - Joint lock [Recovering/Resolving]
  - Joint swelling [Recovering/Resolving]
  - Inflammation [Unknown]
  - White blood cell count decreased [Recovering/Resolving]
